FAERS Safety Report 8732807 (Version 2)
Quarter: 2012Q4

REPORT INFORMATION
  Report Type: 
  Country: DE (occurrence: DE)
  Receive Date: 20120820
  Receipt Date: 20120912
  Transmission Date: 20130627
  Serious: Yes (Other)
  Sender: FDA-Public Use
  Company Number: GXKR2012DE002622

PATIENT
  Age: 70 None
  Sex: Female
  Weight: 77 kg

DRUGS (3)
  1. CIPROFLOXACIN [Suspect]
     Indication: CYSTITIS
     Dosage: UNK UKN, UNK
     Dates: start: 201109
  2. CORTISONE [Suspect]
     Indication: COLLAGEN DISORDER
     Dosage: 6-15 mg/day
     Route: 048
     Dates: start: 2008
  3. CORTISONE [Suspect]
     Dosage: 5 mg/day

REACTIONS (5)
  - Muscle rupture [Not Recovered/Not Resolved]
  - Pain [Not Recovered/Not Resolved]
  - Exostosis [Not Recovered/Not Resolved]
  - Tendon pain [Not Recovered/Not Resolved]
  - Joint swelling [Not Recovered/Not Resolved]
